FAERS Safety Report 8304432-0 (Version None)
Quarter: 2012Q2

REPORT INFORMATION
  Report Type: 
  Country: None (occurrence: None)
  Receive Date: 20120423
  Receipt Date: 20120123
  Transmission Date: 20120825
  Serious: No
  Sender: FDA-Public Use
  Company Number: US-COVIDIEN/TYCO HEALTHCARE/MALLINCKRODT-T201200488

PATIENT
  Sex: Male
  Weight: 25.85 kg

DRUGS (1)
  1. METHYLIN ER [Suspect]
     Indication: ATTENTION DEFICIT/HYPERACTIVITY DISORDER
     Dosage: 20 MG QAM
     Dates: start: 20111101

REACTIONS (2)
  - DRUG SCREEN NEGATIVE [None]
  - DRUG INEFFECTIVE [None]
